FAERS Safety Report 26086961 (Version 1)
Quarter: 2025Q4

REPORT INFORMATION
  Report Type: Spontaneous
  Country: US (occurrence: US)
  Receive Date: 20251125
  Receipt Date: 20251125
  Transmission Date: 20260118
  Serious: Yes (Other)
  Sender: RANBAXY
  Company Number: US-SUN PHARMACEUTICAL INDUSTRIES INC-2025R1-537541

PATIENT
  Age: 13 Year
  Sex: Female

DRUGS (1)
  1. TOPIRAMATE [Suspect]
     Active Substance: TOPIRAMATE
     Indication: Tic
     Dosage: 25 MILLIGRAM, QD
     Route: 065

REACTIONS (2)
  - Intellectual disability [Unknown]
  - Therapeutic response decreased [Unknown]
